FAERS Safety Report 16014089 (Version 4)
Quarter: 2019Q3

REPORT INFORMATION
  Report Type: Report from Study
  Country: US (occurrence: US)
  Receive Date: 20190227
  Receipt Date: 20190816
  Transmission Date: 20191004
  Serious: Yes (Death, Hospitalization, Other)
  Sender: FDA-Public Use
  Company Number: US-PFIZER INC-2018531236

PATIENT
  Age: 61 Year
  Sex: Female

DRUGS (12)
  1. LETROZOLE. [Concomitant]
     Active Substance: LETROZOLE
     Indication: BREAST CANCER METASTATIC
     Dosage: 2.5 MG, UNK
     Dates: start: 201809, end: 201904
  2. IBRANCE [Suspect]
     Active Substance: PALBOCICLIB
     Dosage: 75 MG, CYCLIC, (21 DAYS ON, 7 DAYS OFF)
     Route: 048
     Dates: start: 20190126, end: 201902
  3. ULTRAM [Concomitant]
     Active Substance: TRAMADOL HYDROCHLORIDE
     Dosage: 50 MG, UNK
  4. AMBIEN [Concomitant]
     Active Substance: ZOLPIDEM TARTRATE
     Dosage: 5 MG, UNK
  5. ANASTROZOLE. [Concomitant]
     Active Substance: ANASTROZOLE
     Dosage: 1 MG, UNK
  6. MELOXICAM. [Concomitant]
     Active Substance: MELOXICAM
     Dosage: 7.5 MG, UNK
  7. METHOTREXATE. [Concomitant]
     Active Substance: METHOTREXATE
     Dosage: 2.5 MG, UNK
  8. INFLUENZA VACCINE [Concomitant]
     Active Substance: INFLUENZA VIRUS VACCINE
     Dosage: UNK
  9. IBRANCE [Suspect]
     Active Substance: PALBOCICLIB
     Indication: BREAST CANCER METASTATIC
     Dosage: 125 MG, CYCLIC, (3WEEKS ON 1 WEEK OFF)
     Route: 048
     Dates: start: 201809, end: 201903
  10. IBRANCE [Suspect]
     Active Substance: PALBOCICLIB
     Dosage: 125 MG, CYCLIC (21 DAYS ON, 7 DAYS OFF)
     Route: 048
     Dates: start: 20181215, end: 20190101
  11. DELTASONE [Concomitant]
     Active Substance: PREDNISONE
     Dosage: 5 MG, UNK
  12. ZOFRAN [Concomitant]
     Active Substance: ONDANSETRON HYDROCHLORIDE
     Dosage: 8 MG, UNK

REACTIONS (17)
  - Neoplasm progression [Fatal]
  - Oesophagitis [Unknown]
  - Dysphonia [Unknown]
  - Pneumonia [Unknown]
  - Gastritis [Unknown]
  - Abdominal pain upper [Recovering/Resolving]
  - Abdominal distension [Unknown]
  - Lung disorder [Unknown]
  - Hyperbilirubinaemia [Unknown]
  - Nausea [Not Recovered/Not Resolved]
  - Blood pressure fluctuation [Unknown]
  - Headache [Recovered/Resolved]
  - Hepatic failure [Unknown]
  - Peritonitis bacterial [Unknown]
  - Jaundice [Unknown]
  - Malaise [Unknown]
  - Dyspnoea [Unknown]

NARRATIVE: CASE EVENT DATE: 201812
